FAERS Safety Report 24024642 (Version 1)
Quarter: 2024Q2

REPORT INFORMATION
  Report Type: Report from Study
  Country: TR (occurrence: TR)
  Receive Date: 20240628
  Receipt Date: 20240628
  Transmission Date: 20240716
  Serious: No
  Sender: FDA-Public Use
  Company Number: TR-ROCHE-3121288

PATIENT
  Age: 77 Year
  Sex: Female

DRUGS (7)
  1. ALECTINIB [Suspect]
     Active Substance: ALECTINIB
     Indication: Non-small cell lung cancer metastatic
     Route: 048
     Dates: start: 20190717
  2. ALECTINIB [Suspect]
     Active Substance: ALECTINIB
     Route: 048
     Dates: start: 20210614
  3. PANCREATIN [Concomitant]
     Active Substance: PANCRELIPASE
     Indication: Pancreatic enzymes decreased
     Route: 048
     Dates: start: 20211216
  4. RESPIRO [Concomitant]
     Route: 048
     Dates: start: 2010
  5. LIPOTEARS [Concomitant]
     Indication: Dry eye
     Route: 061
     Dates: start: 2018
  6. D COLEFOR [Concomitant]
     Route: 048
     Dates: start: 20211216, end: 20220329
  7. PAROL [Concomitant]
     Active Substance: ACETAMINOPHEN
     Route: 048
     Dates: start: 20220112

REACTIONS (1)
  - Pain in extremity [Recovered/Resolved]

NARRATIVE: CASE EVENT DATE: 20220112
